FAERS Safety Report 4741739-8 (Version None)
Quarter: 2005Q3

REPORT INFORMATION
  Report Type: 
  Country: None (occurrence: None)
  Receive Date: 20050804
  Receipt Date: 20050419
  Transmission Date: 20060218
  Serious: No
  Sender: FDA-Public Use
  Company Number: WAES 0504USA03523

PATIENT
  Sex: Female
  Weight: 90.2658 kg

DRUGS (11)
  1. EMEND [Suspect]
     Indication: POST PROCEDURAL NAUSEA
     Dosage: SEE IMAGE
     Route: 048
     Dates: start: 20050318, end: 20050318
  2. EMEND [Suspect]
     Indication: POST PROCEDURAL NAUSEA
     Dosage: SEE IMAGE
     Route: 048
     Dates: start: 20050319, end: 20050320
  3. EMEND [Suspect]
     Indication: POST PROCEDURAL NAUSEA
     Dosage: SEE IMAGE
     Route: 048
     Dates: start: 20050321, end: 20050415
  4. ALAXI [Concomitant]
  5. BENADRYL [Concomitant]
  6. DECADRON (DEXAMETHASONE SODIUM P [Concomitant]
  7. LEUCOVORIN [Concomitant]
  8. TAXOL [Concomitant]
  9. ZANTAC [Concomitant]
  10. CARBOPLATIN [Concomitant]
  11. FLUOROURACIL [Concomitant]

REACTIONS (2)
  - FATIGUE [None]
  - LETHARGY [None]
